FAERS Safety Report 23878294 (Version 6)
Quarter: 2025Q3

REPORT INFORMATION
  Report Type: Report from Study
  Country: JP (occurrence: JP)
  Receive Date: 20240521
  Receipt Date: 20250923
  Transmission Date: 20251021
  Serious: Yes (Death, Hospitalization, Other)
  Sender: BRISTOL-MYERS SQUIBB COMPANY
  Company Number: JP-ONO-2023JP028549

PATIENT
  Age: 70 Year
  Sex: Male

DRUGS (3)
  1. OPDIVO [Suspect]
     Active Substance: NIVOLUMAB
     Indication: Non-small cell lung cancer
     Dates: start: 20230524, end: 20230711
  2. CARBOPLATIN [Concomitant]
     Active Substance: CARBOPLATIN
     Indication: Non-small cell lung cancer
     Dates: start: 20230524, end: 20230711
  3. PACLITAXEL [Concomitant]
     Active Substance: PACLITAXEL
     Indication: Non-small cell lung cancer
     Dates: start: 20230524, end: 20230711

REACTIONS (6)
  - Immune-mediated lung disease [Fatal]
  - Septic shock [Fatal]
  - Pneumonia klebsiella [Unknown]
  - Klebsiella sepsis [Unknown]
  - Condition aggravated [Fatal]
  - Toxic skin eruption [Unknown]

NARRATIVE: CASE EVENT DATE: 20230918
